FAERS Safety Report 25118757 (Version 1)
Quarter: 2025Q1

REPORT INFORMATION
  Report Type: Report from Study
  Country: BE (occurrence: BE)
  Receive Date: 20250325
  Receipt Date: 20250325
  Transmission Date: 20250409
  Serious: Yes (Hospitalization)
  Sender: ABBVIE
  Company Number: BE-ABBVIE-6192792

PATIENT

DRUGS (3)
  1. FOSCARBIDOPA\FOSLEVODOPA [Suspect]
     Active Substance: FOSCARBIDOPA\FOSLEVODOPA
     Indication: Parkinson^s disease
     Route: 058
  2. AUGMENTIN [Concomitant]
     Active Substance: AMOXICILLIN\CLAVULANATE POTASSIUM
     Indication: Product used for unknown indication
  3. HEXAMIDINE DIISETHIONATE [Concomitant]
     Active Substance: HEXAMIDINE DIISETHIONATE
     Indication: Product used for unknown indication

REACTIONS (7)
  - Secretion discharge [Unknown]
  - Erythema [Unknown]
  - Pain of skin [Recovering/Resolving]
  - Skin swelling [Unknown]
  - Skin warm [Recovered/Resolved]
  - Abscess [Unknown]
  - Drug ineffective [Unknown]

NARRATIVE: CASE EVENT DATE: 20250314
